FAERS Safety Report 12277540 (Version 1)
Quarter: 2016Q2

REPORT INFORMATION
  Report Type: Spontaneous
  Country: JP (occurrence: JP)
  Receive Date: 20160418
  Receipt Date: 20160418
  Transmission Date: 20160815
  Serious: Yes (Other)
  Sender: FDA-Public Use
  Company Number: JP-MYLANLABS-2016M1015204

PATIENT

DRUGS (3)
  1. MELPHALAN [Suspect]
     Active Substance: MELPHALAN
     Indication: MEDULLOBLASTOMA
     Dosage: 90 MG/M2/DAY (DAYS -3, -2)
     Route: 065
  2. CARBOPLATIN. [Suspect]
     Active Substance: CARBOPLATIN
     Indication: MEDULLOBLASTOMA
     Dosage: 400 MG/M2/DAY (DAYS -7, -6, -5,-4)
     Route: 065
  3. ETOPOSIDE. [Suspect]
     Active Substance: ETOPOSIDE
     Indication: MEDULLOBLASTOMA
     Dosage: 200 MG/M2/DAY (DAYS-7, -6, -5, -4)
     Route: 065

REACTIONS (1)
  - Cerebral haemangioma [Unknown]
